FAERS Safety Report 19737186 (Version 1)
Quarter: 2021Q3

REPORT INFORMATION
  Report Type: Spontaneous
  Country: BE (occurrence: BE)
  Receive Date: 20210824
  Receipt Date: 20210824
  Transmission Date: 20211014
  Serious: Yes (Hospitalization, Other)
  Sender: FDA-Public Use
  Company Number: BE-LUPIN PHARMACEUTICALS INC.-2021-15604

PATIENT
  Age: 33 Year
  Sex: Female

DRUGS (8)
  1. VALPROATE [Interacting]
     Active Substance: VALPROIC ACID
     Indication: DRUG THERAPY
     Dosage: UNK, INITIAL DOSE NOT STATED
     Route: 065
  2. LITHIUM. [Concomitant]
     Active Substance: LITHIUM
     Indication: PRODUCT USED FOR UNKNOWN INDICATION
     Dosage: 600 MILLIGRAM
     Route: 065
  3. LORAZEPAM. [Interacting]
     Active Substance: LORAZEPAM
     Dosage: 2.5 MILLIGRAM, QD, OVER 5 DAYS
     Route: 065
  4. VALPROATE [Interacting]
     Active Substance: VALPROIC ACID
     Dosage: 800 MILLIGRAM, QD, GRADUALLY INCREASED TO 800MG PER DAY DIVIDED IN 2 DOSES
     Route: 065
  5. CLOZAPINE. [Concomitant]
     Active Substance: CLOZAPINE
     Indication: PRODUCT USED FOR UNKNOWN INDICATION
     Dosage: 50 MILLIGRAM
     Route: 065
  6. ARIPIPRAZOLE. [Concomitant]
     Active Substance: ARIPIPRAZOLE
     Dosage: UNK, DOSE HALVED
     Route: 065
  7. LORAZEPAM. [Suspect]
     Active Substance: LORAZEPAM
     Indication: CATATONIA
     Dosage: 7 MILLIGRAM, QD,  DIVIDED IN 4 DOSES
     Route: 042
  8. ARIPIPRAZOLE. [Concomitant]
     Active Substance: ARIPIPRAZOLE
     Indication: PRODUCT USED FOR UNKNOWN INDICATION
     Dosage: 15 MILLIGRAM
     Route: 065

REACTIONS (3)
  - Metabolic encephalopathy [Recovered/Resolved]
  - Drug interaction [Unknown]
  - Stupor [Recovered/Resolved]
